FAERS Safety Report 5821631-8 (Version None)
Quarter: 2008Q3

REPORT INFORMATION
  Report Type: 
  Country: None (occurrence: None)
  Receive Date: 20080724
  Receipt Date: 20080718
  Transmission Date: 20090109
  Serious: Yes (Hospitalization, Other)
  Sender: FDA-Public Use
  Company Number: US-BAXTER-2008BH007651

PATIENT
  Sex: Male

DRUGS (4)
  1. HEPARIN SODIUM INJECTION [Suspect]
     Indication: MYOCARDIAL INFARCTION
     Dosage: DOSE UNIT:UNKNOWN
     Route: 065
     Dates: start: 20060701, end: 20060701
  2. HEPARIN SODIUM INJECTION [Suspect]
     Indication: VASCULAR GRAFT
     Dosage: DOSE UNIT:UNKNOWN
     Route: 065
     Dates: start: 20060701, end: 20060701
  3. HEPARIN SODIUM INJECTION [Suspect]
     Dosage: DOSE UNIT:UNKNOWN
     Route: 065
     Dates: start: 20060701, end: 20060701
  4. HEPARIN SODIUM INJECTION [Suspect]
     Dosage: DOSE UNIT:UNKNOWN
     Route: 065
     Dates: start: 20060701, end: 20060701

REACTIONS (6)
  - CORONARY BYPASS THROMBOSIS [None]
  - HEPARIN-INDUCED THROMBOCYTOPENIA [None]
  - MYOCARDIAL INFARCTION [None]
  - RENAL ARTERY THROMBOSIS [None]
  - RENAL IMPAIRMENT [None]
  - THROMBOSIS [None]
